FAERS Safety Report 6524523-4 (Version None)
Quarter: 2010Q1

REPORT INFORMATION
  Report Type: 
  Country: None (occurrence: None)
  Receive Date: 20100104
  Receipt Date: 20091224
  Transmission Date: 20100710
  Serious: Yes (Hospitalization)
  Sender: FDA-Public Use
  Company Number: US-BRISTOL-MYERS SQUIBB COMPANY-14913065

PATIENT
  Age: 56 Year
  Sex: Male
  Weight: 99 kg

DRUGS (2)
  1. ERBITUX [Suspect]
     Indication: RECTAL CANCER
     Dosage: LAST DOSE ON 14AUG09.DOSE FREQUENCY ON DAY 1 EVERY 21 DAYS.
     Route: 042
     Dates: start: 20090417, end: 20090814
  2. TARCEVA [Suspect]
     Indication: RECTAL CANCER
     Dosage: LAST DOSE 15AUG09.DOSE FREQUENCY ON DAYS 8-21 OF CYCLE.
     Route: 048
     Dates: start: 20090417, end: 20090815

REACTIONS (4)
  - HAEMOGLOBIN DECREASED [None]
  - PAIN IN EXTREMITY [None]
  - PNEUMONIA [None]
  - URINARY TRACT INFECTION [None]
